FAERS Safety Report 4412093-6 (Version None)
Quarter: 2004Q3

REPORT INFORMATION
  Report Type: 
  Country: None (occurrence: None)
  Receive Date: 20040730
  Receipt Date: 20030828
  Transmission Date: 20050211
  Serious: Yes (Other)
  Sender: FDA-Public Use
  Company Number: SE-GLAXOSMITHKLINE-B0308089A

PATIENT
  Age: 44 Year
  Sex: Male

DRUGS (7)
  1. ZINACEF [Suspect]
     Indication: INFECTION
     Route: 065
     Dates: start: 20030501, end: 20030525
  2. LEFLUNOMIDE [Suspect]
     Indication: RHEUMATOID ARTHRITIS
     Dosage: 20MG PER DAY
     Route: 048
     Dates: start: 20010101, end: 20030522
  3. CLINDAMYCIN [Suspect]
     Indication: INFECTION
     Dosage: 1.8G PER DAY
     Route: 042
     Dates: start: 20030526, end: 20030603
  4. CIPROFLOXACIN [Suspect]
     Indication: INFECTION
     Dosage: .8G PER DAY
     Route: 042
     Dates: start: 20030526, end: 20030603
  5. KETOPROFEN [Suspect]
     Indication: RHEUMATOID ARTHRITIS
     Route: 048
     Dates: end: 20030526
  6. IBUPROFEN [Suspect]
     Indication: RHEUMATOID ARTHRITIS
     Route: 065
     Dates: end: 20030526
  7. ANESTHESIA FOR OPERATIVE PROCEDURE [Suspect]

REACTIONS (11)
  - ABDOMINAL PAIN [None]
  - ALANINE AMINOTRANSFERASE INCREASED [None]
  - ASPARTATE AMINOTRANSFERASE INCREASED [None]
  - BLOOD BILIRUBIN INCREASED [None]
  - C-REACTIVE PROTEIN INCREASED [None]
  - FACE OEDEMA [None]
  - INGUINAL HERNIA, OBSTRUCTIVE [None]
  - JAUNDICE [None]
  - LOCALISED OEDEMA [None]
  - PYREXIA [None]
  - TRANSAMINASES INCREASED [None]
